FAERS Safety Report 11397738 (Version 1)
Quarter: 2015Q3

REPORT INFORMATION
  Report Type: Spontaneous
  Country: US (occurrence: US)
  Receive Date: 20150819
  Receipt Date: 20150819
  Transmission Date: 20151125
  Serious: Yes (Other)
  Sender: FDA-Public Use
  Company Number: US-ABBVIE-15P-163-1446378-00

PATIENT

DRUGS (1)
  1. DEPAKOTE ER [Suspect]
     Active Substance: DIVALPROEX SODIUM
     Indication: PRODUCT USED FOR UNKNOWN INDICATION
     Route: 048

REACTIONS (9)
  - Respiration abnormal [Unknown]
  - Emotional distress [Unknown]
  - Crying [Unknown]
  - Feeling abnormal [Unknown]
  - Activities of daily living impaired [Unknown]
  - Asthenia [Unknown]
  - Seizure [Unknown]
  - Tendon injury [Unknown]
  - Narcolepsy [Unknown]

NARRATIVE: CASE EVENT DATE: 2014
